FAERS Safety Report 7544147-X (Version None)
Quarter: 2011Q2

REPORT INFORMATION
  Report Type: 
  Country: None (occurrence: None)
  Receive Date: 20110613
  Receipt Date: 20060509
  Transmission Date: 20111010
  Serious: Yes (Hospitalization, Other)
  Sender: FDA-Public Use
  Company Number: PHHO2006BR02774

PATIENT
  Age: 84 Year
  Sex: Female
  Weight: 84 kg

DRUGS (7)
  1. MONOCORDIL [Concomitant]
  2. DIOVAN [Suspect]
     Dosage: 1 DF, DAILY
     Route: 048
  3. FUROSEMIDE [Concomitant]
  4. ANCORON [Concomitant]
     Indication: ARRHYTHMIA
  5. COUMADIN [Concomitant]
  6. POTASSIUM CHLORIDE [Concomitant]
  7. DIOVAN [Suspect]
     Indication: HYPERTENSION
     Dosage: 0.5 DF, DAILY
     Route: 048

REACTIONS (17)
  - APPETITE DISORDER [None]
  - COUGH [None]
  - CHEST PAIN [None]
  - WEIGHT DECREASED [None]
  - ASTHENIA [None]
  - FALL [None]
  - DYSPNOEA [None]
  - PAIN IN EXTREMITY [None]
  - CARDIAC ARREST [None]
  - DECREASED APPETITE [None]
  - SOMNOLENCE [None]
  - BLOOD PRESSURE INCREASED [None]
  - PAIN [None]
  - GAIT DISTURBANCE [None]
  - CARDIAC DISORDER [None]
  - LOWER LIMB FRACTURE [None]
  - PULMONARY OEDEMA [None]
